FAERS Safety Report 5593157-0 (Version None)
Quarter: 2008Q1

REPORT INFORMATION
  Report Type: 
  Country: None (occurrence: None)
  Receive Date: 20080116
  Receipt Date: 20080109
  Transmission Date: 20080703
  Serious: Yes (Other)
  Sender: FDA-Public Use
  Company Number: US-PURDUE-USA_2008_0031024

PATIENT
  Sex: Male

DRUGS (1)
  1. BETASEPT [Suspect]
     Indication: SURGERY
     Route: 048

REACTIONS (3)
  - INCORRECT ROUTE OF DRUG ADMINISTRATION [None]
  - NAUSEA [None]
  - WHITE BLOOD CELL COUNT INCREASED [None]
